FAERS Safety Report 7995855-8 (Version None)
Quarter: 2011Q4

REPORT INFORMATION
  Report Type: 
  Country: None (occurrence: None)
  Receive Date: 20111220
  Receipt Date: 20111212
  Transmission Date: 20120403
  Serious: Yes (Other)
  Sender: FDA-Public Use
  Company Number: FR-JNJFOC-20110906030

PATIENT
  Sex: Female
  Weight: 75 kg

DRUGS (5)
  1. CRESTOR [Concomitant]
     Indication: HYPERCHOLESTEROLAEMIA
     Route: 048
     Dates: start: 20070101
  2. ASPIRIN [Concomitant]
     Indication: CEREBRAL ISCHAEMIA
     Route: 048
     Dates: start: 20080101
  3. IRBESARTAN [Concomitant]
     Indication: HYPERTENSION
     Route: 048
     Dates: start: 20070101
  4. NEXIUM [Concomitant]
     Indication: GASTRIC ULCER
     Route: 048
     Dates: start: 20070101
  5. TOPIRAMATE [Suspect]
     Indication: EPILEPSY
     Dosage: 25-0-50
     Route: 048
     Dates: start: 20090701, end: 20110916

REACTIONS (3)
  - VISUAL FIELD DEFECT [None]
  - OPTIC ATROPHY [None]
  - VISUAL ACUITY REDUCED [None]
